FAERS Safety Report 16706703 (Version 4)
Quarter: 2020Q3

REPORT INFORMATION
  Report Type: Spontaneous
  Country: JP (occurrence: JP)
  Receive Date: 20190815
  Receipt Date: 20200720
  Transmission Date: 20201102
  Serious: Yes (Death, Hospitalization, Other)
  Sender: FDA-Public Use
  Company Number: JP-ASTRAZENECA-2019SF14717

PATIENT
  Age: 72 Year
  Sex: Male

DRUGS (2)
  1. FORXIGA [Suspect]
     Active Substance: DAPAGLIFLOZIN
     Indication: TYPE 2 DIABETES MELLITUS
     Route: 048
  2. GLACTIV [Concomitant]
     Active Substance: SITAGLIPTIN
     Indication: TYPE 2 DIABETES MELLITUS
     Dosage: DOSE UNKNOWN
     Route: 048

REACTIONS (13)
  - Acute coronary syndrome [Fatal]
  - Weight decreased [Unknown]
  - Arteriosclerosis [Unknown]
  - Decreased appetite [Unknown]
  - Necrosis [Unknown]
  - Peripheral vascular disorder [Unknown]
  - Foot amputation [Unknown]
  - Nasopharyngitis [Unknown]
  - Skin ulcer [Unknown]
  - Localised infection [Unknown]
  - Myocardial infarction [Fatal]
  - Dehydration [Unknown]
  - Gangrene [Unknown]

NARRATIVE: CASE EVENT DATE: 2019
